FAERS Safety Report 6084425-7 (Version None)
Quarter: 2009Q1

REPORT INFORMATION
  Report Type: 
  Country: None (occurrence: None)
  Receive Date: 20090219
  Receipt Date: 20090212
  Transmission Date: 20090719
  Serious: Yes (Death, Life-Threatening, Hospitalization)
  Sender: FDA-Public Use
  Company Number: B0558828A

PATIENT
  Age: 80 Year
  Sex: Female

DRUGS (7)
  1. AMOXICILLIN AND CLAVULANATE POTASSIUM [Suspect]
     Indication: DRUG USE FOR UNKNOWN INDICATION
     Route: 065
     Dates: start: 20090101, end: 20090115
  2. CIFLOX [Suspect]
     Indication: DRUG USE FOR UNKNOWN INDICATION
     Route: 048
     Dates: start: 20090102, end: 20090112
  3. VANCOMYCINE [Suspect]
     Indication: DRUG USE FOR UNKNOWN INDICATION
     Dosage: 500MG PER DAY
     Dates: start: 20090104, end: 20090109
  4. PREVISCAN [Concomitant]
     Dosage: .25UNIT ALTERNATE DAYS
     Route: 065
  5. CELIPROLOL [Concomitant]
     Dosage: 100MG PER DAY
     Route: 065
  6. CORDARONE [Concomitant]
     Dosage: 200MG FIVE TIMES PER WEEK
     Route: 065
  7. FUROSEMIDE [Concomitant]
     Dosage: 40MG PER DAY
     Route: 065

REACTIONS (4)
  - DIARRHOEA [None]
  - MUCOCUTANEOUS CANDIDIASIS [None]
  - NEUTROPENIA [None]
  - PANCYTOPENIA [None]
